FAERS Safety Report 8307018-7 (Version None)
Quarter: 2012Q2

REPORT INFORMATION
  Report Type: 
  Country: None (occurrence: None)
  Receive Date: 20120424
  Receipt Date: 20120418
  Transmission Date: 20120825
  Serious: Yes (Death)
  Sender: FDA-Public Use
  Company Number: PHEH2012US008528

PATIENT
  Age: 59 Year
  Sex: Male
  Weight: 108.8 kg

DRUGS (6)
  1. CRESTOR [Concomitant]
  2. PRILOSEC [Concomitant]
  3. GLEEVEC [Suspect]
     Indication: CHRONIC MYELOID LEUKAEMIA
     Dosage: 600 MG, QD
     Route: 048
  4. LISINOPRIL [Concomitant]
  5. HYDROCHLOROTHIAZIDE [Concomitant]
  6. XANAX [Concomitant]

REACTIONS (1)
  - DEATH [None]
